FAERS Safety Report 4599555-6 (Version None)
Quarter: 2005Q1

REPORT INFORMATION
  Report Type: 
  Country: None (occurrence: None)
  Receive Date: 20050307
  Receipt Date: 20050225
  Transmission Date: 20050727
  Serious: Yes (Hospitalization)
  Sender: FDA-Public Use
  Company Number: 200510692FR

PATIENT
  Age: 72 Year
  Sex: Female
  Weight: 74 kg

DRUGS (5)
  1. RIFADIN [Suspect]
     Route: 048
     Dates: start: 20041223, end: 20050207
  2. ISONIAZID [Concomitant]
     Dates: start: 20041223, end: 20050118
  3. PYRAZINAMIDE [Concomitant]
     Dates: start: 20041223, end: 20050106
  4. ETHAMBUTOL HCL [Concomitant]
     Dates: start: 20041223, end: 20050118
  5. CIPROFLOXACIN [Concomitant]
     Dates: start: 20050107, end: 20050118

REACTIONS (8)
  - CHOLESTASIS [None]
  - CONJUNCTIVITIS [None]
  - CYTOLYTIC HEPATITIS [None]
  - DRUG HYPERSENSITIVITY [None]
  - HEADACHE [None]
  - LEUKOCYTOSIS [None]
  - MYALGIA [None]
  - PYREXIA [None]
